FAERS Safety Report 4908272-1 (Version None)
Quarter: 2006Q1

REPORT INFORMATION
  Report Type: 
  Country: None (occurrence: None)
  Receive Date: 20060210
  Receipt Date: 20060202
  Transmission Date: 20060701
  Serious: Yes (Disabling)
  Sender: FDA-Public Use
  Company Number: US-MERCK-0602USA01609

PATIENT
  Sex: Male

DRUGS (1)
  1. VIOXX [Suspect]
     Indication: GENERAL SYMPTOM
     Route: 048

REACTIONS (3)
  - ANXIETY [None]
  - CONDITION AGGRAVATED [None]
  - NERVOUS SYSTEM DISORDER [None]
